FAERS Safety Report 21749155 (Version 1)
Quarter: 2022Q4

REPORT INFORMATION
  Report Type: Spontaneous
  Country: US (occurrence: US)
  Receive Date: 20221219
  Receipt Date: 20221219
  Transmission Date: 20230112
  Serious: No
  Sender: FDA-Public Use
  Company Number: US-BRISTOL-MYERS SQUIBB COMPANY-2022-155586

PATIENT
  Age: 81 Year
  Sex: Female
  Weight: 63.5 kg

DRUGS (1)
  1. CAMZYOS [Suspect]
     Active Substance: MAVACAMTEN
     Indication: Hypertrophic cardiomyopathy
     Dosage: DOSE : UNAVAILABLE;     FREQ : NIGHTLY
     Route: 048
     Dates: start: 20221205

REACTIONS (6)
  - Headache [Unknown]
  - Gait disturbance [Unknown]
  - Fatigue [Unknown]
  - Hyperhidrosis [Unknown]
  - Condition aggravated [Unknown]
  - Cognitive disorder [Recovered/Resolved]
